FAERS Safety Report 6449088-7 (Version None)
Quarter: 2009Q4

REPORT INFORMATION
  Report Type: 
  Country: None (occurrence: None)
  Receive Date: 20091120
  Receipt Date: 20090313
  Transmission Date: 20100525
  Serious: No
  Sender: FDA-Public Use
  Company Number: US-BRISTOL-MYERS SQUIBB COMPANY-14566475

PATIENT
  Sex: Female

DRUGS (1)
  1. KENALOG [Suspect]
     Route: 065

REACTIONS (2)
  - NASAL CONGESTION [None]
  - NASAL DRYNESS [None]
